FAERS Safety Report 13748188 (Version 2)
Quarter: 2017Q3

REPORT INFORMATION
  Report Type: Spontaneous
  Country: FR (occurrence: FR)
  Receive Date: 20170713
  Receipt Date: 20170724
  Transmission Date: 20171127
  Serious: Yes (Hospitalization, Other)
  Sender: FDA-Public Use
  Company Number: FR-CONCORDIA PHARMACEUTICALS INC.-GSH201707-004007

PATIENT
  Age: 61 Year
  Sex: Male

DRUGS (13)
  1. FORLAX [Suspect]
     Active Substance: POLYETHYLENE GLYCOL 4000
     Indication: CONSTIPATION
     Route: 048
     Dates: start: 20170517, end: 20170604
  2. LIPANTHYL [Concomitant]
     Active Substance: FENOFIBRATE
  3. THERALENE [Suspect]
     Active Substance: TRIMEPRAZINE
     Indication: INSOMNIA
     Route: 048
     Dates: start: 20170602, end: 20170604
  4. NOVONORM [Concomitant]
     Active Substance: REPAGLINIDE
  5. ACUPAN [Concomitant]
     Active Substance: NEFOPAM HYDROCHLORIDE
  6. STAGID [Concomitant]
     Active Substance: METFORMIN PAMOATE
  7. IMOVANE [Suspect]
     Active Substance: ZOPICLONE
     Indication: ANXIETY
     Route: 048
     Dates: start: 20170527, end: 20170604
  8. TRAMADOL. [Concomitant]
     Active Substance: TRAMADOL
  9. ALFUZOSIN [Suspect]
     Active Substance: ALFUZOSIN
     Indication: BENIGN PROSTATIC HYPERPLASIA
     Route: 048
     Dates: start: 20170523, end: 20170604
  10. INEXIUM [Suspect]
     Active Substance: ESOMEPRAZOLE
     Indication: ABDOMINAL PAIN UPPER
     Route: 048
     Dates: start: 20170518, end: 20170604
  11. PARACETAMOL [Concomitant]
     Active Substance: ACETAMINOPHEN
  12. XANAX [Suspect]
     Active Substance: ALPRAZOLAM
     Indication: ANXIETY
     Route: 048
     Dates: start: 20170602, end: 20170604
  13. MEDROL [Concomitant]
     Active Substance: METHYLPREDNISOLONE

REACTIONS (4)
  - Rash maculo-papular [Recovered/Resolved]
  - Rash pruritic [Recovered/Resolved]
  - Pyrexia [Unknown]
  - Rash macular [Recovered/Resolved]

NARRATIVE: CASE EVENT DATE: 20170604
